FAERS Safety Report 8085800-1 (Version None)
Quarter: 2012Q1

REPORT INFORMATION
  Report Type: 
  Country: None (occurrence: None)
  Receive Date: 20120128
  Receipt Date: 20110608
  Transmission Date: 20120608
  Serious: No
  Sender: FDA-Public Use
  Company Number: US-ABBOTT-11P-163-0731316-00

PATIENT
  Sex: Male
  Weight: 77.18 kg

DRUGS (4)
  1. HUMIRA [Suspect]
     Route: 058
     Dates: start: 20101101, end: 20101201
  2. HUMIRA [Suspect]
     Indication: PSORIASIS
     Route: 058
     Dates: start: 20100401, end: 20101101
  3. HUMIRA [Suspect]
     Route: 058
     Dates: start: 20110301
  4. CALCIUM [Concomitant]
     Indication: OSTEOPOROSIS

REACTIONS (2)
  - COUGH [None]
  - OEDEMA PERIPHERAL [None]
